FAERS Safety Report 22531771 (Version 2)
Quarter: 2023Q2

REPORT INFORMATION
  Report Type: Report from Study
  Country: US (occurrence: US)
  Receive Date: 20230607
  Receipt Date: 20230610
  Transmission Date: 20230722
  Serious: Yes (Life-Threatening, Hospitalization)
  Sender: FDA-Public Use
  Company Number: US-ARGENX-2023-ARGX-US001374

PATIENT

DRUGS (1)
  1. VYVGART [Suspect]
     Active Substance: EFGARTIGIMOD ALFA-FCAB
     Indication: Myasthenia gravis
     Dosage: 10 MG/KG
     Route: 042
     Dates: start: 20230407

REACTIONS (10)
  - COVID-19 [Unknown]
  - Disease complication [Unknown]
  - Cardiac pacemaker insertion [Unknown]
  - Cardiac arrest [Recovering/Resolving]
  - Neck pain [Recovering/Resolving]
  - Arthralgia [Recovering/Resolving]
  - Dizziness [Recovering/Resolving]
  - Dysphagia [Recovering/Resolving]
  - Staphylococcal infection [Recovering/Resolving]
  - Pharyngeal polyp [Recovering/Resolving]

NARRATIVE: CASE EVENT DATE: 20230511
